FAERS Safety Report 5655691-4 (Version None)
Quarter: 2008Q1

REPORT INFORMATION
  Report Type: 
  Country: None (occurrence: None)
  Receive Date: 20080212
  Receipt Date: 20070327
  Transmission Date: 20080703
  Serious: Yes (Death)
  Sender: FDA-Public Use
  Company Number: MC200700277

PATIENT
  Age: 72 Year
  Sex: Female
  Weight: 46.7 kg

DRUGS (2)
  1. ANGIOMAX [Suspect]
     Indication: PERCUTANEOUS CORONARY INTERVENTION
     Dosage: 6.8 ML, BOLUS, IV BOLUS
     Route: 040
     Dates: start: 20070326, end: 20070326
  2. ANGIOMAX [Suspect]
     Dosage: 16 ML, HR, INTRAVENOUS
     Route: 042
     Dates: start: 20070326, end: 20070326

REACTIONS (1)
  - STENT OCCLUSION [None]
